FAERS Safety Report 5135042-4 (Version None)
Quarter: 2006Q4

REPORT INFORMATION
  Report Type: 
  Country: None (occurrence: None)
  Receive Date: 20060831
  Receipt Date: 20060504
  Transmission Date: 20070319
  Serious: No
  Sender: FDA-Public Use
  Company Number: 2005-BP-17759BP

PATIENT
  Age: 85 Year
  Sex: Male

DRUGS (8)
  1. SPIRIVA [Suspect]
     Indication: CHRONIC OBSTRUCTIVE PULMONARY DISEASE
     Dosage: 18 MCG (18 MCG,1 CAPSULE INHALED),IH
     Route: 055
     Dates: start: 20040901
  2. SPIRIVA [Suspect]
     Indication: DYSPNOEA
     Dosage: 18 MCG (18 MCG,1 CAPSULE INHALED),IH
     Route: 055
     Dates: start: 20040901
  3. SPIRIVA [Suspect]
  4. NEXIUM (ESOMEPRAZOLE MAGENSIUM) [Concomitant]
  5. FLOMAX [Concomitant]
  6. MULTIVITAMIN [Concomitant]
  7. SONATA [Concomitant]
  8. ACTONEL [Concomitant]

REACTIONS (4)
  - DRY THROAT [None]
  - DYSPNOEA EXERTIONAL [None]
  - NASAL DRYNESS [None]
  - VISION BLURRED [None]
